FAERS Safety Report 8795717 (Version 3)
Quarter: 2012Q4

REPORT INFORMATION
  Report Type: 
  Country: DE (occurrence: JP)
  Receive Date: 20120919
  Receipt Date: 20121106
  Transmission Date: 20130627
  Serious: Yes (Hospitalization)
  Sender: FDA-Public Use
  Company Number: JP-BRISTOL-MYERS SQUIBB COMPANY-16955940

PATIENT
  Age: 58 Year
  Sex: Male

DRUGS (3)
  1. METGLUCO [Suspect]
     Indication: DIABETES MELLITUS
     Route: 048
     Dates: start: 20120411, end: 20120612
  2. SITAGLIPTIN PHOSPHATE [Suspect]
     Indication: DIABETES MELLITUS
     Dosage: Trade: Glactiv
     Route: 048
     Dates: start: 20101022, end: 20120612
  3. AMARYL [Concomitant]
     Indication: DIABETES MELLITUS
     Dosage: Also 1mg
     Route: 048
     Dates: start: 20110124, end: 20120612

REACTIONS (1)
  - Intestinal obstruction [Recovered/Resolved]
